FAERS Safety Report 8552812-0 (Version None)
Quarter: 2012Q3

REPORT INFORMATION
  Report Type: 
  Country: None (occurrence: None)
  Receive Date: 20120731
  Receipt Date: 20120723
  Transmission Date: 20120928
  Serious: Yes (Hospitalization)
  Sender: FDA-Public Use
  Company Number: IT-SANOFI-AVENTIS-2012SA052233

PATIENT
  Age: 25 Year
  Sex: Male

DRUGS (4)
  1. ALPRAZOLAM [Suspect]
     Dosage: 15 TABS
     Route: 048
     Dates: start: 20120517, end: 20120517
  2. BENZYL ALCOHOL/FATTY ACIDS NOS/TESTOSTERONE NICOTINATE [Suspect]
     Route: 065
  3. ZOLPIDEM TARTRATE [Suspect]
     Dosage: 4 OR 5 TABS
     Route: 048
     Dates: start: 20120517, end: 20120517
  4. SERTRALINE HYDROCHLORIDE [Suspect]
     Dosage: 60 TABS
     Route: 048
     Dates: start: 20120517, end: 20120517

REACTIONS (3)
  - INTENTIONAL OVERDOSE [None]
  - VOMITING [None]
  - INTENTIONAL SELF-INJURY [None]
